FAERS Safety Report 5773452-2 (Version None)
Quarter: 2008Q2

REPORT INFORMATION
  Report Type: 
  Country: None (occurrence: None)
  Receive Date: 20080601
  Receipt Date: 20080303
  Transmission Date: 20081010
  Serious: No
  Sender: FDA-Public Use
  Company Number: US200706001899

PATIENT
  Age: 59 Year
  Sex: Female
  Weight: 66.2 kg

DRUGS (14)
  1. BYETTA [Suspect]
     Indication: TYPE 2 DIABETES MELLITUS
     Dosage: 5 UG, 2/D, SUBCUTANEOUS; 10 UG, 2/D, SUBCUTANEOUS; 10 UG, 2/D, SUBCUTANEOUS; 10 UG, 2/D, SUBCUTANEOU
     Route: 058
     Dates: start: 20070208, end: 20070309
  2. BYETTA [Suspect]
     Indication: TYPE 2 DIABETES MELLITUS
     Dosage: 5 UG, 2/D, SUBCUTANEOUS; 10 UG, 2/D, SUBCUTANEOUS; 10 UG, 2/D, SUBCUTANEOUS; 10 UG, 2/D, SUBCUTANEOU
     Route: 058
     Dates: start: 20070301
  3. BYETTA [Suspect]
     Indication: TYPE 2 DIABETES MELLITUS
     Dosage: 5 UG, 2/D, SUBCUTANEOUS; 10 UG, 2/D, SUBCUTANEOUS; 10 UG, 2/D, SUBCUTANEOUS; 10 UG, 2/D, SUBCUTANEOU
     Route: 058
     Dates: start: 20070310
  4. BYETTA [Suspect]
  5. BYETTA [Suspect]
  6. BYETTA [Suspect]
  7. METFORMIN HCL [Concomitant]
  8. GLIPIZIDE [Concomitant]
  9. ASPIRIN [Concomitant]
  10. QUINAPRIL HCL [Concomitant]
  11. HYDROCHLORIDE (HYDROCHLOROTHIAZIDE) [Concomitant]
  12. OMEPRAZOLE [Concomitant]
  13. SIMVASTATIN [Concomitant]
  14. VITAMIN TAB [Concomitant]

REACTIONS (3)
  - ANXIETY [None]
  - INJECTION SITE HAEMORRHAGE [None]
  - WEIGHT DECREASED [None]
